FAERS Safety Report 21555031 (Version 3)
Quarter: 2022Q4

REPORT INFORMATION
  Report Type: Spontaneous
  Country: None (occurrence: GB)
  Receive Date: 20221104
  Receipt Date: 20221220
  Transmission Date: 20230112
  Serious: Yes (Hospitalization)
  Sender: FDA-Public Use
  Company Number: GB-BAXTER-2022BAX021446

PATIENT
  Age: 7 Year
  Sex: Female
  Weight: 21 kg

DRUGS (31)
  1. NITROUS OXIDE [Suspect]
     Active Substance: NITROUS OXIDE
     Indication: Sedative therapy
     Route: 065
     Dates: start: 20220110
  2. ALFENTANIL [Suspect]
     Active Substance: ALFENTANIL
     Route: 065
     Dates: start: 20220110, end: 20220110
  3. ALFENTANIL [Suspect]
     Active Substance: ALFENTANIL
     Route: 065
     Dates: start: 20220207, end: 20220207
  4. ALFENTANIL [Suspect]
     Active Substance: ALFENTANIL
     Route: 065
     Dates: start: 20220307, end: 20220307
  5. ALFENTANIL [Suspect]
     Active Substance: ALFENTANIL
     Route: 065
     Dates: start: 20220404, end: 20220404
  6. ALFENTANIL [Suspect]
     Active Substance: ALFENTANIL
     Route: 065
     Dates: start: 20220627, end: 20220627
  7. ALFENTANIL [Suspect]
     Active Substance: ALFENTANIL
     Route: 065
     Dates: start: 20220926, end: 20220926
  8. CLOBAZAM [Suspect]
     Active Substance: CLOBAZAM
     Route: 065
  9. CLONIDINE [Suspect]
     Active Substance: CLONIDINE
     Route: 065
     Dates: start: 20220101
  10. MIDAZOLAM [Suspect]
     Active Substance: MIDAZOLAM
     Route: 065
     Dates: start: 20220207, end: 20220207
  11. MIDAZOLAM [Suspect]
     Active Substance: MIDAZOLAM
     Route: 065
     Dates: start: 20220307, end: 20220307
  12. MIDAZOLAM [Suspect]
     Active Substance: MIDAZOLAM
     Route: 065
     Dates: start: 20220404, end: 20220404
  13. MIDAZOLAM [Suspect]
     Active Substance: MIDAZOLAM
     Route: 065
     Dates: start: 20220627, end: 20220627
  14. MIDAZOLAM [Suspect]
     Active Substance: MIDAZOLAM
     Route: 065
     Dates: start: 20220926, end: 20220926
  15. MELATONIN [Suspect]
     Active Substance: MELATONIN
     Route: 065
  16. PROPOFOL [Suspect]
     Active Substance: PROPOFOL
     Route: 065
     Dates: start: 20220110, end: 20220110
  17. PROPOFOL [Suspect]
     Active Substance: PROPOFOL
     Route: 065
     Dates: start: 20220207, end: 20220207
  18. PROPOFOL [Suspect]
     Active Substance: PROPOFOL
     Route: 065
     Dates: start: 20220307, end: 20220307
  19. PROPOFOL [Suspect]
     Active Substance: PROPOFOL
     Route: 065
     Dates: start: 20220404, end: 20220404
  20. PROPOFOL [Suspect]
     Active Substance: PROPOFOL
     Route: 065
     Dates: start: 20220627, end: 20220627
  21. PROPOFOL [Suspect]
     Active Substance: PROPOFOL
     Route: 065
     Dates: start: 20220926, end: 20220926
  22. ACETAMINOPHEN [Suspect]
     Active Substance: ACETAMINOPHEN
     Route: 065
     Dates: start: 20220120
  23. SEVOFLURANE [Suspect]
     Active Substance: SEVOFLURANE
     Route: 055
     Dates: start: 20220110, end: 20220110
  24. SEVOFLURANE [Suspect]
     Active Substance: SEVOFLURANE
     Route: 055
     Dates: start: 20220307, end: 20220307
  25. SEVOFLURANE [Suspect]
     Active Substance: SEVOFLURANE
     Route: 055
     Dates: start: 20220207, end: 20220207
  26. SEVOFLURANE [Suspect]
     Active Substance: SEVOFLURANE
     Route: 055
     Dates: start: 20220404, end: 20220404
  27. SEVOFLURANE [Suspect]
     Active Substance: SEVOFLURANE
     Route: 055
     Dates: start: 20220627, end: 20220627
  28. SEVOFLURANE [Suspect]
     Active Substance: SEVOFLURANE
     Route: 055
     Dates: start: 20220926, end: 20220926
  29. ZONISAMIDE [Suspect]
     Active Substance: ZONISAMIDE
     Route: 065
     Dates: start: 20220524
  30. MIDAZOLAM [Suspect]
     Active Substance: MIDAZOLAM
     Route: 065
     Dates: start: 20220110, end: 20220110
  31. ACETAMINOPHEN [Suspect]
     Active Substance: ACETAMINOPHEN

REACTIONS (2)
  - Epilepsy with myoclonic-atonic seizures [Recovered/Resolved]
  - Change in seizure presentation [Recovered/Resolved]

NARRATIVE: CASE EVENT DATE: 20220926
